FAERS Safety Report 23565713 (Version 1)
Quarter: 2024Q1

REPORT INFORMATION
  Report Type: Spontaneous
  Country: US (occurrence: US)
  Receive Date: 20240226
  Receipt Date: 20240226
  Transmission Date: 20240410
  Serious: No
  Sender: FDA-Public Use
  Company Number: US-PFIZER INC-202400048891

PATIENT
  Age: 22 Year
  Sex: Female
  Weight: 297 kg

DRUGS (6)
  1. CIPROFLOXACIN [Suspect]
     Active Substance: CIPROFLOXACIN
     Dosage: UNK
  2. AMOXICILLIN [Suspect]
     Active Substance: AMOXICILLIN
     Dosage: 250 MG
  3. DUPIXENT [Suspect]
     Active Substance: DUPILUMAB
     Dosage: DOSE OF 300 MG Q O W (EVERY OTHER WEEK) SUBCUTANEOUSLY
     Route: 058
  4. AMOXICILLIN [Suspect]
     Active Substance: AMOXICILLIN
     Dosage: 250 MG
  5. PENICILLIN G POTASSIUM [Suspect]
     Active Substance: PENICILLIN G POTASSIUM
     Dosage: MILLION UNIT/50 ML
  6. PENICILLIN V POTASSIUM [Suspect]
     Active Substance: PENICILLIN V POTASSIUM
     Dosage: 500 MG

REACTIONS (1)
  - Drug hypersensitivity [Unknown]
